FAERS Safety Report 4868642-7 (Version None)
Quarter: 2005Q4

REPORT INFORMATION
  Report Type: 
  Country: None (occurrence: None)
  Receive Date: 20051229
  Receipt Date: 20051219
  Transmission Date: 20060501
  Serious: Yes (Other)
  Sender: FDA-Public Use
  Company Number: JP-BRISTOL-MYERS SQUIBB COMPANY-13230347

PATIENT
  Age: 69 Year
  Sex: Female

DRUGS (6)
  1. GATIFLOXACIN [Suspect]
     Indication: CYSTITIS
     Route: 048
     Dates: start: 20051208, end: 20051209
  2. ATELEC [Concomitant]
     Route: 048
     Dates: start: 20010213
  3. MEVALOTIN [Concomitant]
     Route: 048
     Dates: start: 20020718
  4. ADONA [Concomitant]
  5. CARNACULIN [Concomitant]
     Route: 048
  6. DASEN [Concomitant]
     Route: 048

REACTIONS (1)
  - SHOCK [None]
